FAERS Safety Report 7312134-2 (Version None)
Quarter: 2011Q1

REPORT INFORMATION
  Report Type: 
  Country: None (occurrence: None)
  Receive Date: 20110224
  Receipt Date: 20110215
  Transmission Date: 20110831
  Serious: No
  Sender: FDA-Public Use
  Company Number: US-PFIZER INC-2011006736

PATIENT
  Age: 36 Year
  Sex: Male

DRUGS (4)
  1. ULTRAN [Concomitant]
     Dosage: 50 MG, UNK
  2. ARTHROTEC [Suspect]
     Indication: ARTHRITIS
     Dosage: 15/200 BID
     Route: 048
     Dates: start: 20101005, end: 20101010
  3. ARTHROTEC [Suspect]
     Indication: BONE PAIN
  4. FLEXERIL [Concomitant]
     Dosage: 10 MG, UNK

REACTIONS (1)
  - DIARRHOEA [None]
